FAERS Safety Report 5503962-4 (Version None)
Quarter: 2007Q4

REPORT INFORMATION
  Report Type: 
  Country: None (occurrence: None)
  Receive Date: 20071030
  Receipt Date: 20071030
  Transmission Date: 20080405
  Serious: No
  Sender: FDA-Public Use
  Company Number: None

PATIENT
  Age: 38 Year
  Sex: Male
  Weight: 38.8733 kg

DRUGS (2)
  1. CUBICIN [Suspect]
     Indication: WOUND INFECTION
     Dosage: 500 MG  EVERY 24 HOURS  IV
     Route: 042
     Dates: start: 20071022, end: 20071026
  2. CUBICIN [Suspect]

REACTIONS (6)
  - DIARRHOEA [None]
  - INFUSION RELATED REACTION [None]
  - MYALGIA [None]
  - PYREXIA [None]
  - TREMOR [None]
  - VOMITING [None]
